FAERS Safety Report 7562039-7 (Version None)
Quarter: 2011Q2

REPORT INFORMATION
  Report Type: 
  Country: None (occurrence: None)
  Receive Date: 20110622
  Receipt Date: 20090323
  Transmission Date: 20111010
  Serious: Yes (Death, Hospitalization)
  Sender: FDA-Public Use
  Company Number: PHHY2009DE68652

PATIENT
  Sex: Male
  Weight: 63 kg

DRUGS (13)
  1. ACETOLYT [Concomitant]
     Dosage: 300  1X  DAILY
  2. ALLO CT [Concomitant]
     Dosage: 1 X
  3. SANDOSTATIN LAR [Suspect]
     Indication: PANCREATIC NEUROENDOCRINE TUMOUR
     Dosage: 30 MG
     Route: 058
     Dates: start: 20090323
  4. ANTIBIOTICS ORAL [Concomitant]
     Route: 048
  5. PYRAZINAMIDE [Concomitant]
     Dosage: 500MG  4X1
  6. LEVOTHYROXINE SODIUM [Concomitant]
     Dosage: 125  1-0-0
  7. RIFAMPICIN [Concomitant]
     Dosage: 600MG  1X1
  8. ALLOPURINOL [Concomitant]
     Dosage: 100  0-0-1
  9. PLEON RA [Concomitant]
     Dosage: 500MG  4X1
  10. AMLODIPINE 1SS [Concomitant]
     Dosage: 1/2  -0-1/2
  11. TORSEMIDE [Concomitant]
  12. ISOZID-COMPOSITUM [Concomitant]
     Dosage: 300MG  1X1
  13. NORFLOXACIN [Concomitant]
     Dosage: 400MG   0-0-1

REACTIONS (3)
  - DYSPNOEA [None]
  - PULMONARY OEDEMA [None]
  - DEATH [None]
